FAERS Safety Report 9232628 (Version 1)
Quarter: 2013Q2

REPORT INFORMATION
  Report Type: Spontaneous
  Country: US (occurrence: None)
  Receive Date: 20130415
  Receipt Date: 20130415
  Transmission Date: 20140414
  Serious: Yes (Other)
  Sender: FDA-Public Use
  Company Number: None

PATIENT
  Age: 74 Year
  Sex: Female
  Weight: 68.04 kg

DRUGS (1)
  1. ENOXAPARIN SODIUM [Suspect]
     Indication: DEEP VEIN THROMBOSIS
     Dosage: 60 MG. 2 TIMES DAILY SUBCUTANEOUSLY
     Route: 058
     Dates: start: 20110307, end: 20130321

REACTIONS (5)
  - Contusion [None]
  - Haemorrhage [None]
  - Pain [None]
  - Swelling [None]
  - Muscular weakness [None]
